FAERS Safety Report 15742710 (Version 3)
Quarter: 2019Q1

REPORT INFORMATION
  Report Type: Spontaneous
  Country: US (occurrence: US)
  Receive Date: 20181219
  Receipt Date: 20190206
  Transmission Date: 20190417
  Serious: Yes (Hospitalization, Other)
  Sender: FDA-Public Use
  Company Number: US-AMGEN-USASP2018179717

PATIENT
  Age: 77 Year
  Sex: Female

DRUGS (2)
  1. ENBREL [Suspect]
     Active Substance: ETANERCEPT
     Indication: ANKYLOSING SPONDYLITIS
  2. ENBREL [Suspect]
     Active Substance: ETANERCEPT
     Indication: RHEUMATOID ARTHRITIS
     Dosage: 50 MG, QWK
     Route: 065

REACTIONS (9)
  - Ankle fracture [Unknown]
  - Finger deformity [Unknown]
  - Erythema [Unknown]
  - Glaucoma [Not Recovered/Not Resolved]
  - Pain in extremity [Unknown]
  - Meniscus injury [Unknown]
  - Spinal cord injury [Unknown]
  - Fall [Unknown]
  - Dysgraphia [Unknown]
